FAERS Safety Report 4893403-2 (Version None)
Quarter: 2006Q1

REPORT INFORMATION
  Report Type: 
  Country: None (occurrence: None)
  Receive Date: 20060125
  Receipt Date: 20060125
  Transmission Date: 20060701
  Serious: Yes (Hospitalization, Other)
  Sender: FDA-Public Use
  Company Number: None

PATIENT
  Sex: Female
  Weight: 59 kg

DRUGS (2)
  1. BUSULFAN [Suspect]
     Indication: ACUTE MYELOID LEUKAEMIA
     Dosage: SEE IMAGE
     Route: 048
     Dates: start: 20060104
  2. ETOPOSIDE [Suspect]
     Dosage: SEE IMAGE
     Route: 042
     Dates: start: 20060108

REACTIONS (8)
  - ABDOMINAL PAIN [None]
  - ABDOMINAL TENDERNESS [None]
  - DIARRHOEA [None]
  - FEBRILE NEUTROPENIA [None]
  - RASH PUSTULAR [None]
  - STEM CELL TRANSPLANT [None]
  - TONSILLAR DISORDER [None]
  - WHITE BLOOD CELL COUNT DECREASED [None]
